FAERS Safety Report 8430144-9 (Version None)
Quarter: 2012Q2

REPORT INFORMATION
  Report Type: 
  Country: None (occurrence: None)
  Receive Date: 20120612
  Receipt Date: 20120604
  Transmission Date: 20120825
  Serious: Yes (Hospitalization, Disabling, Other)
  Sender: FDA-Public Use
  Company Number: US-MERCK-1112USA01239

PATIENT
  Age: 49 Year
  Sex: Female
  Weight: 72 kg

DRUGS (13)
  1. FOSAMAX [Suspect]
     Indication: OSTEOPOROSIS
     Route: 048
     Dates: start: 19981116, end: 20010301
  2. ACTONEL [Suspect]
     Indication: OSTEOPENIA
     Route: 048
     Dates: start: 20061201, end: 20110116
  3. FOSAMAX [Suspect]
     Route: 048
     Dates: start: 20010301, end: 20020101
  4. ACTONEL [Suspect]
     Indication: OSTEOPOROSIS
     Route: 048
     Dates: start: 20061201, end: 20110116
  5. OMEGA-3 MARINE TRIGLYCERIDES [Concomitant]
     Route: 048
  6. FOSAMAX [Suspect]
     Route: 048
     Dates: start: 20010301, end: 20020101
  7. CALCIUM (UNSPECIFIED) [Concomitant]
     Route: 048
     Dates: start: 19980101
  8. VITAMINS (UNSPECIFIED) [Concomitant]
     Route: 048
  9. ASCORBIC ACID [Concomitant]
     Route: 048
     Dates: start: 19980101
  10. VITAMIN D (UNSPECIFIED) [Concomitant]
     Route: 048
     Dates: start: 19980101
  11. FOSAMAX [Suspect]
     Indication: OSTEOPENIA
     Route: 048
     Dates: start: 19981116, end: 20010301
  12. FOSAMAX [Suspect]
     Route: 048
     Dates: start: 20030101, end: 20061201
  13. FOSAMAX [Suspect]
     Route: 048
     Dates: start: 20030101, end: 20061201

REACTIONS (29)
  - CEREBROVASCULAR ACCIDENT [None]
  - ISCHAEMIC STROKE [None]
  - ARTERIOSCLEROSIS [None]
  - BUNION [None]
  - DEPRESSION [None]
  - FOOT DEFORMITY [None]
  - OSTEITIS [None]
  - METATARSUS PRIMUS VARUS [None]
  - URINARY TRACT INFECTION [None]
  - ARTHRALGIA [None]
  - DEVICE DISLOCATION [None]
  - ANAEMIA [None]
  - TENDONITIS [None]
  - TENDON RUPTURE [None]
  - OSTEOARTHRITIS [None]
  - DYSPEPSIA [None]
  - ATELECTASIS [None]
  - HYPERGLYCAEMIA [None]
  - SYNOVITIS [None]
  - FIBULA FRACTURE [None]
  - HYPERTENSION [None]
  - PATHOLOGICAL FRACTURE [None]
  - DYSTHYMIC DISORDER [None]
  - HYPERSENSITIVITY [None]
  - JOINT DISLOCATION [None]
  - MITRAL VALVE INCOMPETENCE [None]
  - DEVICE ISSUE [None]
  - MEDICAL DEVICE SITE REACTION [None]
  - MUSCULOSKELETAL DISCOMFORT [None]
